FAERS Safety Report 18243543 (Version 1)
Quarter: 2020Q3

REPORT INFORMATION
  Report Type: Spontaneous
  Country: DK (occurrence: DK)
  Receive Date: 20200908
  Receipt Date: 20200908
  Transmission Date: 20201103
  Serious: Yes (Death, Hospitalization)
  Sender: FDA-Public Use
  Company Number: DK-JNJFOC-20200847862

PATIENT
  Age: 92 Year
  Sex: Female

DRUGS (11)
  1. LOSARTAN. [Concomitant]
     Active Substance: LOSARTAN
     Indication: HYPERTENSION
     Dosage: STRENGTH: 50 MG.
     Route: 048
     Dates: start: 20140422
  2. BISACODYL. [Concomitant]
     Active Substance: BISACODYL
     Indication: CONSTIPATION
     Dosage: DOSE: 1?2 TABL. AS NECESSARY. STRENGTH: 5 MG.
     Route: 048
     Dates: start: 20150413
  3. CALCIUM + VITAMIN D [CALCIUM;COLECALCIFEROL] [Concomitant]
     Active Substance: CALCIUM\CHOLECALCIFEROL
     Indication: MINERAL SUPPLEMENTATION
     Dosage: STRENGTH: UNKNOWN
     Route: 048
     Dates: start: 20151022
  4. PANTOPRAZOLE [Concomitant]
     Active Substance: PANTOPRAZOLE
     Indication: PROPHYLAXIS AGAINST GASTROINTESTINAL ULCER
     Dosage: STRENGTH: 40 MG.
     Route: 048
     Dates: start: 20150703
  5. PREFRINAL MED ZINKSULFAT [Concomitant]
     Indication: MINERAL SUPPLEMENTATION
     Dosage: STRENGTH: UNKNOWN
     Route: 048
     Dates: start: 20151110
  6. MIRTAZAPINE. [Concomitant]
     Active Substance: MIRTAZAPINE
     Indication: INSOMNIA
     Dosage: STRENGTH: 15 MG.
     Route: 048
     Dates: start: 20160113
  7. SIMVASTATIN. [Concomitant]
     Active Substance: SIMVASTATIN
     Indication: HYPERCHOLESTEROLAEMIA
     Dosage: STRENGTH: 40 MG.
     Route: 048
     Dates: start: 20130602
  8. ZOLPIDEM [Concomitant]
     Active Substance: ZOLPIDEM TARTRATE
     Indication: INSOMNIA
     Dosage: STRENGTH: 5 MG.
     Route: 048
     Dates: start: 20181210
  9. FERROUS FUMARATE [Concomitant]
     Active Substance: FERROUS FUMARATE
     Indication: MINERAL SUPPLEMENTATION
     Dosage: STRENGTH: UNKNOWN.
     Route: 048
     Dates: start: 20151029
  10. METOPROLOL. [Concomitant]
     Active Substance: METOPROLOL
     Indication: ARRHYTHMIA
     Dosage: STRENGTH: 25 MG.
     Route: 048
     Dates: start: 20140423
  11. RIVAROXABAN [Suspect]
     Active Substance: RIVAROXABAN
     Indication: ATRIAL FIBRILLATION
     Dosage: STRENGTH: 20 MG
     Route: 048
     Dates: start: 20140423, end: 20200718

REACTIONS (4)
  - Cerebral haemorrhage [Fatal]
  - Cerebrovascular accident [Fatal]
  - Hemiparesis [Fatal]
  - Eye movement disorder [Fatal]

NARRATIVE: CASE EVENT DATE: 20200718
